FAERS Safety Report 8967767 (Version 1)
Quarter: 2012Q4

REPORT INFORMATION
  Report Type: 
  Country: US (occurrence: US)
  Receive Date: 20121217
  Receipt Date: 20121217
  Transmission Date: 20130627
  Serious: No
  Sender: FDA-Public Use
  Company Number: US-ASTRAZENECA-2012SE91337

PATIENT
  Age: 603 Month
  Sex: Female

DRUGS (1)
  1. PULMICORT FLEXHALER [Suspect]
     Indication: ASTHMA
     Dosage: TWO PUFFS BID
     Route: 055
     Dates: start: 20121110

REACTIONS (2)
  - Chest discomfort [Unknown]
  - Cough [Unknown]
